FAERS Safety Report 4821740-6 (Version None)
Quarter: 2005Q4

REPORT INFORMATION
  Report Type: 
  Country: None (occurrence: None)
  Receive Date: 20051107
  Receipt Date: 20051025
  Transmission Date: 20060501
  Serious: Yes (Life-Threatening, Other)
  Sender: FDA-Public Use
  Company Number: JP-BRISTOL-MYERS SQUIBB COMPANY-13170147

PATIENT
  Sex: Female

DRUGS (3)
  1. ENDOXAN [Suspect]
  2. FARMORUBICIN [Suspect]
  3. FLUOROURACIL [Concomitant]

REACTIONS (1)
  - VENTRICULAR FIBRILLATION [None]
